FAERS Safety Report 17048352 (Version 1)
Quarter: 2019Q4

REPORT INFORMATION
  Report Type: Spontaneous
  Country: US (occurrence: US)
  Receive Date: 20191118
  Receipt Date: 20191118
  Transmission Date: 20200122
  Serious: Yes (Other)
  Sender: FDA-Public Use
  Company Number: None

PATIENT
  Age: 29 Year
  Sex: Male
  Weight: 67.5 kg

DRUGS (3)
  1. IC CLONAZEPAM 1MG TABLET [Suspect]
     Active Substance: CLONAZEPAM
     Indication: ANXIETY
     Dosage: ?          QUANTITY:16 TABLET(S);?
     Route: 048
     Dates: start: 20191106, end: 20191114
  2. BENADRYL [Concomitant]
     Active Substance: DIPHENHYDRAMINE HYDROCHLORIDE
  3. REMERON [Concomitant]
     Active Substance: MIRTAZAPINE

REACTIONS (5)
  - Pruritus [None]
  - Recalled product [None]
  - Therapy non-responder [None]
  - Rash [None]
  - Induration [None]

NARRATIVE: CASE EVENT DATE: 20191109
